FAERS Safety Report 19566367 (Version 3)
Quarter: 2021Q3

REPORT INFORMATION
  Report Type: Spontaneous
  Country: GB (occurrence: GB)
  Receive Date: 20210714
  Receipt Date: 20210924
  Transmission Date: 20211014
  Serious: Yes (Hospitalization, Other)
  Sender: FDA-Public Use
  Company Number: GB-PFIZER INC-2021814266

PATIENT
  Age: 8 Year
  Sex: Male
  Weight: 20.4 kg

DRUGS (57)
  1. VENETOCLAX. [Suspect]
     Active Substance: VENETOCLAX
     Indication: NEOPLASM MALIGNANT
     Dosage: 350 MG (350 MG (350 MG? 2) (8 DAYS)  )
     Route: 048
     Dates: start: 20210330, end: 20210407
  2. VENETOCLAX. [Suspect]
     Active Substance: VENETOCLAX
     Dosage: 350 MG (350 MG? 2)
     Route: 065
     Dates: start: 20210504
  3. CHLORPHENAMINE [Concomitant]
     Active Substance: CHLORPHENIRAMINE MALEATE
     Indication: ALLERGIC TRANSFUSION REACTION
     Dosage: 4 MG, AS NEEDED
     Route: 048
     Dates: start: 20210601
  4. DOCUSATE [Concomitant]
     Active Substance: DOCUSATE
     Dosage: 50 MG, 1X/DAY
     Route: 048
     Dates: start: 20210726
  5. LEVOMEPROMAZINE [Concomitant]
     Active Substance: LEVOMEPROMAZINE
     Indication: ANTIEMETIC SUPPORTIVE CARE
     Dosage: 2.2 MG (1.1 MG, 2 IN 1 DAY)
     Route: 042
     Dates: start: 20210601
  6. MORPHINE [Concomitant]
     Active Substance: MORPHINE
     Dosage: 60 MG, 1X/DAY SUSTAINED RELEASE
     Route: 048
     Dates: start: 20210512, end: 20210517
  7. MORPHINE [Concomitant]
     Active Substance: MORPHINE
     Dosage: 20 UNK
     Route: 048
     Dates: start: 20210504, end: 20210509
  8. TOPOTECAN HYDROCHLORIDE. [Suspect]
     Active Substance: TOPOTECAN HYDROCHLORIDE
     Dosage: 0.64 MG/M2, 1X/DAY (1 IN 1 DAY)
     Route: 042
     Dates: start: 20210401, end: 20210405
  9. TOPOTECAN HYDROCHLORIDE. [Suspect]
     Active Substance: TOPOTECAN HYDROCHLORIDE
     Dosage: 0.65 MG/M2, 1X/DAY
     Route: 042
     Dates: start: 20210601, end: 20210605
  10. LEVOMEPROMAZINE [Concomitant]
     Active Substance: LEVOMEPROMAZINE
     Dosage: 2.2 MG, 1X/DAY
     Route: 042
     Dates: start: 20210507, end: 20210508
  11. MORPHINE [Concomitant]
     Active Substance: MORPHINE
     Dosage: 120 MG, AS NEEDED
     Route: 048
     Dates: start: 20210504, end: 20210509
  12. NORMAL SALINE [Concomitant]
     Active Substance: SODIUM CHLORIDE
     Indication: TUMOUR LYSIS SYNDROME
     Dosage: UNK (375 ML)
     Route: 042
     Dates: start: 20210330, end: 20210407
  13. TINZAPARIN [Concomitant]
     Active Substance: TINZAPARIN
     Indication: ANTICOAGULANT THERAPY
     Dosage: 6000 IU (1 DAY)
     Route: 058
     Dates: start: 20210526
  14. SEVREDOL [Concomitant]
     Active Substance: MORPHINE
     Indication: PAIN
     Dosage: 10 MG, AS NEEDED
     Route: 048
     Dates: start: 20210806
  15. COLECALCIFEROL [Concomitant]
     Active Substance: CHOLECALCIFEROL
     Indication: VITAMIN SUPPLEMENTATION
     Dosage: UNK (1 CAPSULE, 3 IN 1 WEEK)
     Route: 048
     Dates: start: 20210331
  16. DOCUSATE [Concomitant]
     Active Substance: DOCUSATE
     Indication: CONSTIPATION PROPHYLAXIS
     Dosage: 300 MG (100 MG, 3 IN 1 DAY)
     Route: 048
     Dates: start: 20210508
  17. DOCUSATE [Concomitant]
     Active Substance: DOCUSATE
     Dosage: 1000 MG, 1X/DAY
     Route: 048
     Dates: start: 20210329, end: 20210508
  18. METOCLOPRAMIDE. [Concomitant]
     Active Substance: METOCLOPRAMIDE
     Dosage: 15 MG (5 MG, 3 IN 1 DAY)
     Route: 048
     Dates: start: 20210508
  19. MOVICOL [Concomitant]
     Active Substance: POLYETHYLENE GLYCOL 3350\POTASSIUM CHLORIDE\SODIUM BICARBONATE\SODIUM CHLORIDE
     Indication: CONSTIPATION
     Dosage: UNK (1?2 SACHETS AS REQUIRED)
     Route: 048
     Dates: start: 20210517
  20. TOPOTECAN HYDROCHLORIDE. [Suspect]
     Active Substance: TOPOTECAN HYDROCHLORIDE
     Indication: NEOPLASM MALIGNANT
     Dosage: 0.64 MG (1 IN 1 DAY)
     Route: 065
     Dates: start: 20210504
  21. TOPOTECAN HYDROCHLORIDE. [Suspect]
     Active Substance: TOPOTECAN HYDROCHLORIDE
     Dosage: 0.63 MG/M2
     Route: 042
     Dates: start: 20210628
  22. DEXAMETHASONE. [Concomitant]
     Active Substance: DEXAMETHASONE
     Dosage: 6 MG, 1X/DAY
     Route: 048
     Dates: start: 20210726
  23. MORPHINE [Concomitant]
     Active Substance: MORPHINE
     Indication: PAIN
     Dosage: 10 MG, AS NEEDED
     Route: 048
     Dates: start: 20210509
  24. HYOSCINE [Concomitant]
     Active Substance: SCOPOLAMINE
     Dosage: 0.5 MG AS NEEDED
     Route: 061
     Dates: start: 20210630
  25. CYCLOPHOSPHAMIDE. [Suspect]
     Active Substance: CYCLOPHOSPHAMIDE
     Indication: NEOPLASM MALIGNANT
     Dosage: 210 MG, 1X/DAY
     Route: 042
     Dates: start: 20210504
  26. CYCLOPHOSPHAMIDE. [Suspect]
     Active Substance: CYCLOPHOSPHAMIDE
     Dosage: 210 MG (1 IN 1 DAY) (4 DAYS)
     Route: 042
     Dates: start: 20210401, end: 20210405
  27. CHLORPHENAMINE [Concomitant]
     Active Substance: CHLORPHENIRAMINE MALEATE
     Indication: HYPERSENSITIVITY
     Dosage: 4 MG, AS NEEDED
     Route: 042
     Dates: start: 20210329
  28. DEXAMETHASONE. [Concomitant]
     Active Substance: DEXAMETHASONE
     Indication: ANALGESIC THERAPY
     Dosage: 4 MG (2 MG,2 IN 1 DAY)
     Route: 042
     Dates: start: 20210406, end: 20210407
  29. DOCUSATE [Concomitant]
     Active Substance: DOCUSATE
     Dosage: 300 MG, 1X/DAY
     Route: 048
     Dates: start: 20210628
  30. LIPEGFILGRASTIM [Concomitant]
     Active Substance: LIPEGFILGRASTIM
     Indication: BLOOD DISORDER PROPHYLAXIS
     Dosage: 2.5 MG (5 MG, 3 IN 1 DAY)
     Route: 058
     Dates: start: 20210509, end: 20210510
  31. METOCLOPRAMIDE. [Concomitant]
     Active Substance: METOCLOPRAMIDE
     Indication: NAUSEA
     Dosage: 15 MG (5 MG, 3 IN 1 DAY)
     Route: 042
     Dates: start: 20210330, end: 20210507
  32. CHLORPHENAMINE [Concomitant]
     Active Substance: CHLORPHENIRAMINE MALEATE
     Dosage: 5 MG AS NEEDED
     Route: 048
     Dates: start: 20210713
  33. COTRIMOXAZOLE [Concomitant]
     Active Substance: SULFAMETHOXAZOLE\TRIMETHOPRIM
     Indication: ANTIBIOTIC PROPHYLAXIS
     Dosage: 360 MG, 1X/DAY
     Route: 048
     Dates: start: 20210331
  34. CYCLIZINE [Concomitant]
     Active Substance: CYCLIZINE
     Indication: ANTIEMETIC SUPPORTIVE CARE
     Dosage: 75 MG (25 MG,3 IN 1 DAY)
     Route: 042
     Dates: start: 20210330
  35. DEXAMETHASONE. [Concomitant]
     Active Substance: DEXAMETHASONE
     Dosage: 4 MG, 1X/DAY
     Route: 048
     Dates: start: 20210627
  36. DEXAMETHASONE. [Concomitant]
     Active Substance: DEXAMETHASONE
     Dosage: 3.8 MG, 1X/DAY
     Route: 048
     Dates: start: 20210605, end: 20210609
  37. MIDAZOLAM. [Concomitant]
     Active Substance: MIDAZOLAM
     Indication: PAIN
     Dosage: 2 MG, AS NEEDED
     Route: 048
     Dates: start: 20210321
  38. VENETOCLAX. [Suspect]
     Active Substance: VENETOCLAX
     Dosage: 170 MG, 1X/DAY
     Route: 048
     Dates: start: 20210330, end: 20210330
  39. ALLOPURINOL. [Concomitant]
     Active Substance: ALLOPURINOL
     Indication: TUMOUR LYSIS SYNDROME
     Dosage: 240 MG (1 IN 1 DAY)
     Route: 048
     Dates: start: 20210330, end: 20210404
  40. CHLORPHENAMINE [Concomitant]
     Active Substance: CHLORPHENIRAMINE MALEATE
     Dosage: 2.5 MG AS NEEDED
     Route: 042
     Dates: start: 20210412, end: 20210412
  41. CYCLIZINE [Concomitant]
     Active Substance: CYCLIZINE
     Dosage: 75 MG (25 MG,3 IN 1 DAY)
     Route: 048
     Dates: start: 20210602
  42. DEXAMETHASONE. [Concomitant]
     Active Substance: DEXAMETHASONE
     Indication: CHEMOTHERAPY SIDE EFFECT PROPHYLAXIS
     Dosage: 4 MG (2 MG,2 IN 1 DAY)
     Route: 048
     Dates: start: 20210531, end: 20210606
  43. DEXAMETHASONE. [Concomitant]
     Active Substance: DEXAMETHASONE
     Dosage: 4 MG, 1X/DAY
     Route: 042
     Dates: start: 20210504, end: 20210605
  44. DEXAMETHASONE. [Concomitant]
     Active Substance: DEXAMETHASONE
     Dosage: 6 MG, 1X/DAY
     Route: 042
     Dates: start: 20210403, end: 20210406
  45. GABAPENTIN. [Concomitant]
     Active Substance: GABAPENTIN
     Indication: PAIN
     Dosage: 600 MG (200 MG, 3 IN 1 DAY)
     Route: 048
     Dates: start: 20210329
  46. HEPARIN [Concomitant]
     Active Substance: HEPARIN SODIUM
     Indication: PRODUCT USED FOR UNKNOWN INDICATION
     Dosage: 10 UNITS/ML (3 IN 1 DAY)
     Route: 042
     Dates: start: 20210329
  47. OMEPRAZOLE. [Concomitant]
     Active Substance: OMEPRAZOLE
     Indication: DYSPEPSIA
     Dosage: 20 MG (20 MG,1 IN 1 DAY)
     Route: 048
     Dates: start: 20210310
  48. HYOSCINE [Concomitant]
     Active Substance: SCOPOLAMINE
     Indication: VOMITING
     Dosage: 1 MG AS NEEDED
     Route: 061
     Dates: start: 20210601
  49. HYOSCINE [Concomitant]
     Active Substance: SCOPOLAMINE
     Dosage: 500 MG CONT
     Route: 062
     Dates: start: 20210508, end: 20210509
  50. SEVREDOL [Concomitant]
     Active Substance: MORPHINE
     Dosage: 30 MG, EVERY 4 HRS
     Route: 048
     Dates: start: 20210324, end: 20210504
  51. SEVREDOL [Concomitant]
     Active Substance: MORPHINE
     Dosage: 10 MG, AS NEEDED
     Route: 048
     Dates: start: 20210629
  52. DEXAMETHASONE. [Concomitant]
     Active Substance: DEXAMETHASONE
     Dosage: 8 MG, 1X/DAY
     Route: 048
     Dates: start: 20210330, end: 20210403
  53. LEVOMEPROMAZINE [Concomitant]
     Active Substance: LEVOMEPROMAZINE
     Dosage: 2.2 MG, 1X/DAY
     Route: 042
     Dates: start: 20210628
  54. MORPHINE [Concomitant]
     Active Substance: MORPHINE
     Dosage: 40 MG (20 MG, 2 IN 1 DAY)
     Route: 048
     Dates: start: 20210517
  55. MORPHINE [Concomitant]
     Active Substance: MORPHINE
     Dosage: 80 MG, 1X/DAY SUSTAINED RELEASE
     Route: 048
     Dates: start: 20210509, end: 20210512
  56. ONDANSETRON [Concomitant]
     Active Substance: ONDANSETRON
     Indication: ANTIEMETIC SUPPORTIVE CARE
     Dosage: 12 MG (4 MG,3 IN 1 DAY)
     Route: 042
     Dates: start: 20210330
  57. ONDANSETRON [Concomitant]
     Active Substance: ONDANSETRON
     Dosage: 12 MG (4 MG,3 IN 1 DAY)
     Route: 042
     Dates: start: 20210602

REACTIONS (10)
  - Vomiting [Unknown]
  - Palpitations [Unknown]
  - Groin pain [Unknown]
  - Nodule [Unknown]
  - Cellulitis [Unknown]
  - Off label use [Unknown]
  - Ear pain [Unknown]
  - Oropharyngeal pain [Unknown]
  - White blood cell count decreased [Unknown]
  - Febrile neutropenia [Not Recovered/Not Resolved]

NARRATIVE: CASE EVENT DATE: 20210609
